FAERS Safety Report 4893784-X (Version None)
Quarter: 2006Q1

REPORT INFORMATION
  Report Type: 
  Country: None (occurrence: None)
  Receive Date: 20060127
  Receipt Date: 20060118
  Transmission Date: 20060701
  Serious: Yes (Other)
  Sender: FDA-Public Use
  Company Number: 2006GB00085

PATIENT
  Age: 29 Year
  Sex: Female
  Weight: 78 kg

DRUGS (1)
  1. OMEPRAZOLE [Suspect]
     Indication: GASTRITIS
     Route: 048
     Dates: start: 20051207, end: 20051208

REACTIONS (4)
  - ABDOMINAL PAIN [None]
  - DIZZINESS [None]
  - HYPERHIDROSIS [None]
  - PHOTOPSIA [None]
